FAERS Safety Report 4647964-9 (Version None)
Quarter: 2005Q2

REPORT INFORMATION
  Report Type: 
  Country: None (occurrence: None)
  Receive Date: 20050428
  Receipt Date: 20050422
  Transmission Date: 20051028
  Serious: Yes (Other)
  Sender: FDA-Public Use
  Company Number: PHEH2005US04699

PATIENT
  Age: 76 Year
  Sex: Male

DRUGS (6)
  1. TIAZAC [Concomitant]
  2. XANAX [Concomitant]
  3. DETROL - SLOW RELEASE [Concomitant]
  4. MONOPRIL [Concomitant]
  5. ZOLOFT [Concomitant]
  6. LESCOL [Suspect]
     Indication: HYPERCHOLESTEROLAEMIA
     Dosage: 20 MG, QD
     Dates: start: 20041001

REACTIONS (4)
  - CHOKING SENSATION [None]
  - ENDOSCOPY [None]
  - NEUROPATHY [None]
  - OESOPHAGEAL POLYP [None]
